FAERS Safety Report 13071432 (Version 3)
Quarter: 2017Q1

REPORT INFORMATION
  Report Type: Spontaneous
  Country: JP (occurrence: JP)
  Receive Date: 20161229
  Receipt Date: 20170216
  Transmission Date: 20170428
  Serious: Yes (Life-Threatening, Hospitalization)
  Sender: FDA-Public Use
  Company Number: JP-ELI_LILLY_AND_COMPANY-JP201611007383

PATIENT
  Age: 87 Year
  Sex: Female
  Weight: 49 kg

DRUGS (8)
  1. NICERGOLINE [Concomitant]
     Active Substance: NICERGOLINE
     Indication: CEREBRAL INFARCTION
     Dosage: 5 MG, TID
     Route: 048
     Dates: end: 20161117
  2. AMBROXOL [Concomitant]
     Active Substance: AMBROXOL
     Indication: BRONCHITIS CHRONIC
     Dosage: 45 MG, QD
     Route: 048
     Dates: start: 20160526
  3. BETAHISTINE [Concomitant]
     Active Substance: BETAHISTINE
     Indication: DIZZINESS
     Dosage: 6 MG, TID
     Route: 048
     Dates: end: 20161117
  4. CYMBALTA [Suspect]
     Active Substance: DULOXETINE HYDROCHLORIDE
     Indication: BACK PAIN
     Dosage: 20 MG, QD
     Route: 048
     Dates: start: 20161111, end: 20161117
  5. FEBURIC [Concomitant]
     Active Substance: FEBUXOSTAT
     Indication: HYPERURICAEMIA
     Dosage: 10 MG, QD
     Route: 048
     Dates: start: 20160526
  6. TULOBUTEROL [Concomitant]
     Active Substance: TULOBUTEROL
     Indication: BRONCHITIS CHRONIC
     Dosage: 2 MG, QD
     Route: 062
  7. TRYPTANOL                          /00002202/ [Suspect]
     Active Substance: AMITRIPTYLINE
     Indication: DEPRESSION
     Dosage: 10 MG, TID
     Route: 048
     Dates: end: 20161117
  8. PAROXETINE. [Suspect]
     Active Substance: PAROXETINE
     Indication: DEPRESSION
     Dosage: 20 MG, QD
     Route: 048
     Dates: end: 20161117

REACTIONS (4)
  - Urinary tract infection [Recovered/Resolved]
  - Rhabdomyolysis [Recovering/Resolving]
  - Neuroleptic malignant syndrome [Recovering/Resolving]
  - Urinary retention [Recovered/Resolved]

NARRATIVE: CASE EVENT DATE: 20161118
